FAERS Safety Report 8080158-6 (Version None)
Quarter: 2012Q1

REPORT INFORMATION
  Report Type: 
  Country: None (occurrence: None)
  Receive Date: 20120124
  Receipt Date: 20120118
  Transmission Date: 20120608
  Serious: Yes (Congenital Anomaly)
  Sender: FDA-Public Use
  Company Number: ADR-UNK-041

PATIENT
  Age: 252 Day
  Sex: Male
  Weight: 425.2 kg

DRUGS (5)
  1. RITONAVIR [Concomitant]
  2. LAMIVUDINE/ZIDOVUDINE [Concomitant]
  3. DARUNAVIR [Concomitant]
  4. LOPINAVIR AND RITONAVIR [Concomitant]
  5. ZIDOVUDINE TABLETS (UKNOWN MANUFACTURER) [Suspect]
     Indication: ACQUIRED IMMUNODEFICIENCY SYNDROME
     Dosage: BID
     Dates: start: 20110915, end: 20110915

REACTIONS (4)
  - MATERNAL DRUGS AFFECTING FOETUS [None]
  - CONGENITAL ANOMALY [None]
  - PREMATURE BABY [None]
  - FOETAL GROWTH RESTRICTION [None]
